FAERS Safety Report 8448599-2 (Version None)
Quarter: 2012Q2

REPORT INFORMATION
  Report Type: 
  Country: None (occurrence: None)
  Receive Date: 20120619
  Receipt Date: 20120606
  Transmission Date: 20120825
  Serious: Yes (Death, Life-Threatening, Hospitalization, Other)
  Sender: FDA-Public Use
  Company Number: US-MYLANLABS-2009AC000174

PATIENT
  Age: 81 Year
  Sex: Female
  Weight: 54.43 kg

DRUGS (24)
  1. ATROVENT [Concomitant]
  2. COUMADIN [Concomitant]
  3. ROCALTROL [Concomitant]
  4. DILAUDID [Concomitant]
  5. ASPIRIN [Concomitant]
  6. VENOFER [Concomitant]
     Dosage: 300MG X3 ONE WEEK APART
  7. VICODIN [Concomitant]
  8. DEMADEX [Concomitant]
  9. LOTENSIN [Concomitant]
  10. PROVENTIL [Concomitant]
  11. DIOVAN [Concomitant]
  12. TOPROL-XL [Concomitant]
  13. WARFARIN SODIUM [Concomitant]
  14. HALDOL [Concomitant]
  15. DIGOXIN [Suspect]
     Indication: HEART RATE IRREGULAR
     Route: 048
     Dates: start: 19980407, end: 20080725
  16. NITROGLYCERIN [Concomitant]
  17. VALSARTAN [Concomitant]
  18. K-TAB [Concomitant]
  19. COMBIVENT [Concomitant]
     Dosage: 2 PUFFS QID
  20. OXYGEN [Concomitant]
  21. HECTOROL [Concomitant]
  22. CARDIZEM [Concomitant]
  23. PEPCID [Concomitant]
  24. LASIX [Concomitant]

REACTIONS (101)
  - PLEURAL EFFUSION [None]
  - CHRONIC OBSTRUCTIVE PULMONARY DISEASE [None]
  - RENAL FAILURE CHRONIC [None]
  - ARTERIOSCLEROSIS [None]
  - EPISTAXIS [None]
  - TERMINAL STATE [None]
  - CARDIOMEGALY [None]
  - RESTLESSNESS [None]
  - EMOTIONAL DISTRESS [None]
  - CONSTIPATION [None]
  - CACHEXIA [None]
  - MALNUTRITION [None]
  - PAIN IN EXTREMITY [None]
  - TRANSFUSION [None]
  - ACUTE CORONARY SYNDROME [None]
  - CAROTID ARTERY STENOSIS [None]
  - MUSCULOSKELETAL CHEST PAIN [None]
  - COUGH [None]
  - PYREXIA [None]
  - HYPERLIPIDAEMIA [None]
  - LUNG NEOPLASM [None]
  - PALPITATIONS [None]
  - VASCULAR PSEUDOANEURYSM [None]
  - PAIN [None]
  - ANEURYSM REPAIR [None]
  - PULMONARY HYPERTENSION [None]
  - RESPIRATORY DISTRESS [None]
  - CAROTID ANGIOPLASTY [None]
  - CHEST X-RAY ABNORMAL [None]
  - CHOLELITHIASIS [None]
  - ULTRASOUND DOPPLER ABNORMAL [None]
  - FATIGUE [None]
  - HYPOKALAEMIA [None]
  - PULMONARY FUNCTION TEST ABNORMAL [None]
  - TREATMENT NONCOMPLIANCE [None]
  - WHEEZING [None]
  - SYNCOPE [None]
  - ECONOMIC PROBLEM [None]
  - ACUTE RESPIRATORY FAILURE [None]
  - CARDIAC FAILURE CONGESTIVE [None]
  - ANAEMIA [None]
  - ATRIAL FIBRILLATION [None]
  - HYPOTENSION [None]
  - BENIGN NEOPLASM [None]
  - CAROTID ENDARTERECTOMY [None]
  - EMPHYSEMA [None]
  - HYPERPARATHYROIDISM [None]
  - ILL-DEFINED DISORDER [None]
  - PULMONARY OEDEMA [None]
  - RENAL FAILURE ACUTE [None]
  - ATHEROSCLEROSIS PROPHYLAXIS [None]
  - DEATH [None]
  - HYPERTENSION [None]
  - CONFUSIONAL STATE [None]
  - RHONCHI [None]
  - NAUSEA [None]
  - ATELECTASIS [None]
  - MITRAL VALVE INCOMPETENCE [None]
  - CAROTID ARTERY STENT INSERTION [None]
  - CHEST PAIN [None]
  - DYSPNOEA EXERTIONAL [None]
  - LETHARGY [None]
  - OEDEMA [None]
  - RALES [None]
  - CARDIAC MURMUR [None]
  - DYSPNOEA [None]
  - SOCIAL AVOIDANT BEHAVIOUR [None]
  - VIITH NERVE PARALYSIS [None]
  - POST PROCEDURAL OEDEMA [None]
  - ARTERIAL REPAIR [None]
  - COMPUTERISED TOMOGRAM ABNORMAL [None]
  - CAROTID BRUIT [None]
  - DECREASED APPETITE [None]
  - OXYGEN SUPPLEMENTATION [None]
  - PALLOR [None]
  - PROTEINURIA [None]
  - UPPER RESPIRATORY TRACT INFECTION [None]
  - COAGULATION TEST ABNORMAL [None]
  - TOXICITY TO VARIOUS AGENTS [None]
  - PROTHROMBIN LEVEL INCREASED [None]
  - LOSS OF EMPLOYMENT [None]
  - CREPITATIONS [None]
  - HYPOXIA [None]
  - PNEUMONIA [None]
  - BREATH SOUNDS ABNORMAL [None]
  - HOSPICE CARE [None]
  - MENINGOCELE [None]
  - PERIPHERAL VASCULAR DISORDER [None]
  - TACHYCARDIA [None]
  - UNDERWEIGHT [None]
  - WEIGHT DECREASED [None]
  - INJURY [None]
  - CYANOSIS [None]
  - BENIGN GASTROINTESTINAL NEOPLASM [None]
  - ABNORMAL FAECES [None]
  - HYPERCAPNIA [None]
  - NEPHROSCLEROSIS [None]
  - DIZZINESS [None]
  - MYOCARDIAL ISCHAEMIA [None]
  - ECHOCARDIOGRAM ABNORMAL [None]
  - ORTHOSTATIC HYPOTENSION [None]
